FAERS Safety Report 18430517 (Version 4)
Quarter: 2021Q2

REPORT INFORMATION
  Report Type: Report from Study
  Country: AR (occurrence: AR)
  Receive Date: 20201027
  Receipt Date: 20210604
  Transmission Date: 20210717
  Serious: Yes (Other)
  Sender: FDA-Public Use
  Company Number: NVSC2020AR004893

PATIENT
  Age: 60 Year
  Sex: Female

DRUGS (4)
  1. ATENOLOL. [Concomitant]
     Active Substance: ATENOLOL
     Indication: PRODUCT USED FOR UNKNOWN INDICATION
     Dosage: 25 MG, QD
     Route: 065
  2. TASIGNA [Suspect]
     Active Substance: NILOTINIB
     Indication: CHRONIC MYELOID LEUKAEMIA
     Dosage: 600 MG, QD
     Route: 065
     Dates: start: 20190701
  3. TASIGNA [Suspect]
     Active Substance: NILOTINIB
     Dosage: 300 MG, BID, TABLET
     Route: 048
     Dates: start: 20190701
  4. TASIGNA [Suspect]
     Active Substance: NILOTINIB
     Dosage: 150 MG, (600 MG/DAY) (FORMULATION REPORTED AS TABLET)
     Route: 048
     Dates: start: 20190701

REACTIONS (14)
  - Blood pressure increased [Recovering/Resolving]
  - Back pain [Recovering/Resolving]
  - Arthralgia [Recovering/Resolving]
  - Malaise [Unknown]
  - Fatigue [Unknown]
  - Inappropriate schedule of product administration [Unknown]
  - Spinal compression fracture [Recovering/Resolving]
  - Condition aggravated [Unknown]
  - Fall [Unknown]
  - Wound [Recovered/Resolved]
  - Pain [Unknown]
  - Pruritus [Unknown]
  - Varicella [Unknown]
  - Stress [Unknown]

NARRATIVE: CASE EVENT DATE: 201912
